FAERS Safety Report 10428001 (Version 1)
Quarter: 2014Q3

REPORT INFORMATION
  Report Type: Spontaneous
  Country: US (occurrence: US)
  Receive Date: 20140903
  Receipt Date: 20140903
  Transmission Date: 20150326
  Serious: Yes (Hospitalization, Other)
  Sender: FDA-Public Use
  Company Number: US-ACTAVIS-2014-18916

PATIENT
  Age: 13 Year
  Sex: Male

DRUGS (3)
  1. QUETIAPINE (AGPTC) [Suspect]
     Active Substance: QUETIAPINE
     Indication: AFFECTIVE DISORDER
     Dosage: 100 MG, DAILY
     Route: 065
  2. QUETIAPINE (AGPTC) [Suspect]
     Active Substance: QUETIAPINE
     Dosage: 500 MG, DAILY
     Route: 048
  3. QUETIAPINE (AGPTC) [Suspect]
     Active Substance: QUETIAPINE
     Indication: DRUG ABUSE
     Dosage: 4000 MG, CYCLICAL
     Route: 045

REACTIONS (8)
  - Drug abuse [Unknown]
  - Dyskinesia [Unknown]
  - Akathisia [Unknown]
  - Tachypnoea [Unknown]
  - Myoclonus [Unknown]
  - Intentional product misuse [Unknown]
  - Tachycardia [Unknown]
  - Mydriasis [Unknown]
